FAERS Safety Report 11632184 (Version 1)
Quarter: 2015Q4

REPORT INFORMATION
  Report Type: Spontaneous
  Country: JP (occurrence: JP)
  Receive Date: 20151015
  Receipt Date: 20151015
  Transmission Date: 20160304
  Serious: Yes (Life-Threatening, Other)
  Sender: FDA-Public Use
  Company Number: JP-ASTRAZENECA-2015SE99467

PATIENT
  Age: 26 Year
  Sex: Male
  Weight: 68 kg

DRUGS (2)
  1. ANTIPHLOGISTIC DRUG [Suspect]
     Active Substance: UNSPECIFIED INGREDIENT
     Route: 065
     Dates: start: 20151005, end: 20151005
  2. SEROQUEL [Suspect]
     Active Substance: QUETIAPINE FUMARATE
     Route: 048
     Dates: start: 20151005, end: 20151005

REACTIONS (8)
  - Intentional overdose [Unknown]
  - Incontinence [Unknown]
  - Chest X-ray abnormal [Unknown]
  - Glossoptosis [Unknown]
  - Coma [Unknown]
  - Blood pressure decreased [Unknown]
  - Suicide attempt [Unknown]
  - Blood gases abnormal [Unknown]

NARRATIVE: CASE EVENT DATE: 20151005
